FAERS Safety Report 15263430 (Version 1)
Quarter: 2018Q3

REPORT INFORMATION
  Report Type: Report from Study
  Country: DE (occurrence: DE)
  Receive Date: 20180810
  Receipt Date: 20180810
  Transmission Date: 20181010
  Serious: Yes (Death, Hospitalization, Other)
  Sender: FDA-Public Use
  Company Number: DE-ACTELION-A-CH2018-177049

PATIENT
  Age: 47 Year
  Sex: Female
  Weight: 162 kg

DRUGS (7)
  1. CITALOPRAM [Concomitant]
     Active Substance: CITALOPRAM HYDROBROMIDE
     Indication: DEPRESSION
     Dosage: UNK
     Route: 048
     Dates: end: 20180719
  2. TOREM [Concomitant]
     Active Substance: TORSEMIDE
     Indication: PULMONARY ARTERIAL HYPERTENSION
     Dosage: UNK, PRN
     Route: 048
     Dates: end: 20180719
  3. FRAXIPARIN [Concomitant]
     Active Substance: NADROPARIN CALCIUM
     Indication: THROMBOSIS PROPHYLAXIS
     Dosage: UNK
     Route: 058
     Dates: start: 20180618, end: 20180719
  4. UPTRAVI [Suspect]
     Active Substance: SELEXIPAG
     Indication: PULMONARY ARTERIAL HYPERTENSION
     Dosage: 400 UNK, QD
     Route: 048
     Dates: start: 20180619, end: 20180719
  5. SPIRONOLACTON [Concomitant]
     Active Substance: SPIRONOLACTONE
     Indication: PROPHYLAXIS
     Dosage: UNK
     Route: 048
     Dates: start: 20180612, end: 20180719
  6. SILDENAFIL. [Concomitant]
     Active Substance: SILDENAFIL
     Indication: PULMONARY ARTERIAL HYPERTENSION
     Dosage: 60 UNK, QD
     Route: 048
     Dates: start: 200711, end: 20180719
  7. OPSUMIT [Concomitant]
     Active Substance: MACITENTAN
     Indication: PULMONARY ARTERIAL HYPERTENSION
     Dosage: 10 UNK, QD
     Dates: start: 201505, end: 20180719

REACTIONS (10)
  - Seizure [Unknown]
  - Respiratory tract infection [Unknown]
  - Bradycardia [Unknown]
  - Influenza [Unknown]
  - Status epilepticus [Unknown]
  - Right ventricular failure [Fatal]
  - Hypoxia [Unknown]
  - Deafness [Unknown]
  - Syncope [Unknown]
  - Infection [Unknown]

NARRATIVE: CASE EVENT DATE: 20180719
